FAERS Safety Report 4604584-X (Version None)
Quarter: 2005Q2

REPORT INFORMATION
  Report Type: 
  Country: None (occurrence: None)
  Receive Date: 20050223
  Receipt Date: 20041221
  Transmission Date: 20051028
  Serious: No
  Sender: FDA-Public Use
  Company Number: PHEH2004US13522

PATIENT
  Age: 80 Year
  Sex: Female

DRUGS (2)
  1. ZELNORM [Suspect]
     Indication: CONSTIPATION
     Dosage: 6 MG, BID,
     Dates: start: 20041124
  2. FOSAMAX [Concomitant]

REACTIONS (3)
  - DRY MOUTH [None]
  - DYSGEUSIA [None]
  - THIRST [None]
